FAERS Safety Report 21531230 (Version 1)
Quarter: 2022Q4

REPORT INFORMATION
  Report Type: Spontaneous
  Country: US (occurrence: None)
  Receive Date: 20221028
  Receipt Date: 20221028
  Transmission Date: 20230113
  Serious: Yes (Hospitalization)
  Sender: FDA-Public Use
  Company Number: None

PATIENT
  Age: 48 Year
  Sex: Male
  Weight: 85 kg

DRUGS (2)
  1. EMPAGLIFLOZIN [Suspect]
     Active Substance: EMPAGLIFLOZIN
     Indication: Diabetes mellitus
     Dosage: OTHER FREQUENCY : AM;?
     Route: 048
     Dates: start: 20220630, end: 20220917
  2. EMPAGLIFLOZIN [Suspect]
     Active Substance: EMPAGLIFLOZIN
     Indication: Vascular device user

REACTIONS (3)
  - Sepsis [None]
  - Urinary tract infection [None]
  - Haematuria [None]

NARRATIVE: CASE EVENT DATE: 20220917
